FAERS Safety Report 20069260 (Version 1)
Quarter: 2021Q4

REPORT INFORMATION
  Report Type: Spontaneous
  Country: US (occurrence: None)
  Receive Date: 20211112
  Receipt Date: 20211112
  Transmission Date: 20220303
  Serious: Yes (Other)
  Sender: FDA-Public Use
  Company Number: None

PATIENT
  Age: 25 Year
  Sex: Female
  Weight: 100.35 kg

DRUGS (1)
  1. LEVOTHYROXINE [Suspect]
     Active Substance: LEVOTHYROXINE
     Indication: Autoimmune thyroiditis
     Dosage: FREQUENCY : DAILY;?
     Route: 048
     Dates: start: 20211023, end: 20211112

REACTIONS (2)
  - Fatigue [None]
  - Dizziness [None]

NARRATIVE: CASE EVENT DATE: 20211105
